FAERS Safety Report 20937584 (Version 1)
Quarter: 2022Q2

REPORT INFORMATION
  Report Type: Spontaneous
  Country: US (occurrence: None)
  Receive Date: 20220608
  Receipt Date: 20220608
  Transmission Date: 20220721
  Serious: No
  Sender: FDA-Public Use
  Company Number: None

PATIENT
  Sex: Male

DRUGS (1)
  1. HUMIRA [Suspect]
     Active Substance: ADALIMUMAB
     Indication: Crohn^s disease
     Dosage: OTHER QUANTITY : 1 DOSE;?FREQUENCY : WEEKLY;?
     Route: 058
     Dates: start: 201909

REACTIONS (3)
  - Abdominal pain upper [None]
  - Dehydration [None]
  - Large intestinal obstruction [None]
